FAERS Safety Report 5330484-6 (Version None)
Quarter: 2007Q2

REPORT INFORMATION
  Report Type: 
  Country: None (occurrence: None)
  Receive Date: 20070516
  Receipt Date: 20070503
  Transmission Date: 20071010
  Serious: Yes (Hospitalization, Other)
  Sender: FDA-Public Use
  Company Number: 155148ISR

PATIENT
  Age: 56 Year
  Sex: Female

DRUGS (3)
  1. DIAZEPAM [Suspect]
     Indication: AGITATION
     Dosage: 10 MG (10 MG, 1 IN 1 D)
     Dates: start: 19920301
  2. HALOPERIDOL [Suspect]
     Indication: PSYCHOTIC DISORDER
     Dosage: 1.5 MG, AS REQUIRED
     Dates: start: 19920301
  3. PROCYCLIDINE HYDROCHLORIDE 2MG TAB [Suspect]
     Dosage: 15 MG (5 MG, 3 IN 1 D)
     Dates: start: 19920301

REACTIONS (11)
  - AGITATION [None]
  - ASPIRATION [None]
  - CREPITATIONS [None]
  - DYSPHAGIA [None]
  - DYSPHONIA [None]
  - MALNUTRITION [None]
  - ORTHOSTATIC HYPOTENSION [None]
  - PARKINSONISM [None]
  - PRODUCTIVE COUGH [None]
  - RESTLESSNESS [None]
  - WEIGHT DECREASED [None]
